FAERS Safety Report 21615963 (Version 3)
Quarter: 2023Q2

REPORT INFORMATION
  Report Type: Report from Study
  Country: US (occurrence: US)
  Receive Date: 20221118
  Receipt Date: 20230509
  Transmission Date: 20230722
  Serious: No
  Sender: FDA-Public Use
  Company Number: US-ABBVIE-22K-163-4472318-00

PATIENT
  Sex: Female

DRUGS (5)
  1. SKYRIZI [Suspect]
     Active Substance: RISANKIZUMAB-RZAA
     Indication: Psoriasis
     Dosage: FORM STRENGTH: 75 MILLIGRAM
     Route: 058
  2. SKYRIZI [Suspect]
     Active Substance: RISANKIZUMAB-RZAA
     Dosage: FORM STRENGTH: 75 MILLIGRAM
     Route: 058
  3. MODERNA COVID-19 VACCINE [Concomitant]
     Active Substance: ELASOMERAN
     Indication: COVID-19 immunisation
     Dosage: TIME INTERVAL: 1 TOTAL: 1ST DOSE?1 IN ONCE
     Route: 030
     Dates: start: 20210625, end: 20210625
  4. MODERNA COVID-19 VACCINE [Concomitant]
     Active Substance: ELASOMERAN
     Indication: COVID-19 immunisation
     Dosage: TIME INTERVAL: 1 TOTAL: 2ND DOSE?1 IN ONCE
     Route: 030
     Dates: start: 20210723, end: 20210723
  5. MODERNA COVID-19 VACCINE [Concomitant]
     Active Substance: ELASOMERAN
     Indication: COVID-19 immunisation
     Dosage: TIME INTERVAL: 1 TOTAL: 3RD DOSE?1 IN ONCE
     Route: 030
     Dates: start: 20211209, end: 20211209

REACTIONS (6)
  - Ear pruritus [Unknown]
  - Skin lesion [Unknown]
  - Pruritus [Unknown]
  - Onychoclasis [Unknown]
  - Eyelids pruritus [Unknown]
  - Pruritus [Unknown]
